FAERS Safety Report 5624526-8 (Version None)
Quarter: 2008Q1

REPORT INFORMATION
  Report Type: 
  Country: None (occurrence: None)
  Receive Date: 20080211
  Receipt Date: 20080211
  Transmission Date: 20080703
  Serious: Yes (Life-Threatening, Other)
  Sender: FDA-Public Use
  Company Number: None

PATIENT
  Sex: Male
  Weight: 90.7194 kg

DRUGS (1)
  1. PROAIR HFA [Suspect]
     Indication: ASTHMA
     Dosage: 8.5 GM 200METERED DOSES AS NEEDED PO
     Route: 048

REACTIONS (2)
  - DRUG INEFFECTIVE [None]
  - PHARMACEUTICAL PRODUCT COMPLAINT [None]
